FAERS Safety Report 9882780 (Version 1)
Quarter: 2014Q1

REPORT INFORMATION
  Report Type: Spontaneous
  Country: DE (occurrence: DE)
  Receive Date: 20140207
  Receipt Date: 20140207
  Transmission Date: 20141002
  Serious: Yes (Hospitalization)
  Sender: FDA-Public Use
  Company Number: GXKR2014DE000797

PATIENT
  Sex: Male

DRUGS (2)
  1. CARBAMAZEPIN HEXAL RETARD [Suspect]
     Dosage: 600 MG, TID
     Route: 048
  2. GABAPENTIN HEXAL [Suspect]
     Dosage: UNK, NO TREATMENT
     Route: 048

REACTIONS (4)
  - Fall [Unknown]
  - Drug dispensing error [Unknown]
  - Dysarthria [Unknown]
  - Disorientation [Unknown]
